FAERS Safety Report 10416009 (Version 1)
Quarter: 2014Q3

REPORT INFORMATION
  Report Type: Spontaneous
  Country: CN (occurrence: None)
  Receive Date: 20140826
  Receipt Date: 20140826
  Transmission Date: 20150326
  Serious: Yes (Hospitalization)
  Sender: FDA-Public Use
  Company Number: B1017890A

PATIENT
  Age: 77 Year
  Sex: Female
  Weight: 48.9 kg

DRUGS (2)
  1. PAROXETINE HYDROCHLORIDE TABLET (PAROXETINE HYDROCHLORIDE) [Suspect]
     Active Substance: PAROXETINE HYDROCHLORIDE
     Indication: DEPRESSION
     Route: 048
     Dates: start: 20130913, end: 20131113
  2. OLANZAPINE. [Suspect]
     Active Substance: OLANZAPINE
     Indication: DEPRESSION
     Route: 048

REACTIONS (3)
  - Lethargy [None]
  - Coma [None]
  - Somnolence [None]

NARRATIVE: CASE EVENT DATE: 20131113
